FAERS Safety Report 9262649 (Version 1)
Quarter: 2013Q2

REPORT INFORMATION
  Report Type: Spontaneous
  Country: US (occurrence: None)
  Receive Date: 20130426
  Receipt Date: 20130426
  Transmission Date: 20140414
  Serious: Yes (Other)
  Sender: FDA-Public Use
  Company Number: DAV-AE-PEN-13-01

PATIENT
  Sex: Male

DRUGS (1)
  1. PENICILLIN [Suspect]

REACTIONS (1)
  - Adverse reaction [None]
